FAERS Safety Report 14462160 (Version 3)
Quarter: 2020Q2

REPORT INFORMATION
  Report Type: Spontaneous
  Country: US (occurrence: US)
  Receive Date: 20180130
  Receipt Date: 20200505
  Transmission Date: 20200713
  Serious: Yes (Hospitalization, Other)
  Sender: FDA-Public Use
  Company Number: US-PFIZER INC-2018035082

PATIENT
  Age: 43 Year
  Sex: Female
  Weight: 92.53 kg

DRUGS (1)
  1. AROMASIN [Suspect]
     Active Substance: EXEMESTANE
     Indication: BREAST CANCER METASTATIC
     Dosage: 25 MG, ONCE A DAY
     Route: 048

REACTIONS (3)
  - Intentional dose omission [Unknown]
  - Pyrexia [Recovering/Resolving]
  - Cellulitis [Recovering/Resolving]
